FAERS Safety Report 7333414-0 (Version None)
Quarter: 2011Q1

REPORT INFORMATION
  Report Type: 
  Country: None (occurrence: None)
  Receive Date: 20110304
  Receipt Date: 20110303
  Transmission Date: 20110831
  Serious: Yes (Other)
  Sender: FDA-Public Use
  Company Number: HU-ABBOTT-11P-076-0706997-00

PATIENT
  Age: 69 Year
  Sex: Male

DRUGS (9)
  1. ADALIMUMAB [Suspect]
     Indication: ANKYLOSING SPONDYLITIS
     Dosage: 80-40-40MG (INDUCTION)
     Route: 058
     Dates: start: 20080604
  2. ADALIMUMAB [Suspect]
     Indication: CROHN'S DISEASE
     Route: 058
  3. ADALIMUMAB [Suspect]
     Dates: end: 20090101
  4. METHYLPREDNISOLONE [Concomitant]
     Indication: ANKYLOSING SPONDYLITIS
  5. METHYLPREDNISOLONE [Concomitant]
     Indication: CROHN'S DISEASE
     Route: 048
     Dates: start: 20080501, end: 20080801
  6. METRONIDAZOLE [Concomitant]
     Indication: INFLAMMATORY BOWEL DISEASE
     Route: 048
     Dates: start: 20060101
  7. MESALAZIN [Concomitant]
     Indication: ARTHRITIS
     Route: 048
     Dates: start: 20080501
  8. ADALIMUMAB [Suspect]
  9. NIMESULIDE [Concomitant]
     Indication: ARTHRITIS
     Route: 048
     Dates: start: 20080501

REACTIONS (1)
  - COUGH [None]
